FAERS Safety Report 5559928-1 (Version None)
Quarter: 2007Q4

REPORT INFORMATION
  Report Type: 
  Country: None (occurrence: None)
  Receive Date: 20071214
  Receipt Date: 20071024
  Transmission Date: 20080405
  Serious: No
  Sender: FDA-Public Use
  Company Number: US-ABBOTT-07P-163-0421973-00

PATIENT
  Sex: Female

DRUGS (1)
  1. HUMIRA [Suspect]
     Indication: DRUG USE FOR UNKNOWN INDICATION

REACTIONS (5)
  - ACCIDENTAL EXPOSURE [None]
  - INJECTION SITE BRUISING [None]
  - INJECTION SITE PAIN [None]
  - INJECTION SITE REACTION [None]
  - PROCEDURAL COMPLICATION [None]
